FAERS Safety Report 5844943-0 (Version None)
Quarter: 2008Q3

REPORT INFORMATION
  Report Type: 
  Country: None (occurrence: None)
  Receive Date: 20080814
  Receipt Date: 20080804
  Transmission Date: 20090109
  Serious: Yes (Hospitalization)
  Sender: FDA-Public Use
  Company Number: IT-BAYER-200823896GPV

PATIENT
  Age: 76 Year
  Sex: Male

DRUGS (7)
  1. CIPROFLOXACIN HCL [Suspect]
     Indication: CHOLELITHIASIS
     Dosage: UNIT DOSE: 500 MG
     Route: 048
     Dates: start: 20080320, end: 20080329
  2. CARVEDILOL [Concomitant]
     Indication: DRUG USE FOR UNKNOWN INDICATION
     Route: 065
  3. PLAVIX [Concomitant]
     Indication: DRUG USE FOR UNKNOWN INDICATION
     Dosage: UNIT DOSE: 75 MG
     Route: 048
  4. RAMIPRIL [Concomitant]
     Indication: DRUG USE FOR UNKNOWN INDICATION
     Dosage: UNIT DOSE: 2.5 MG
     Route: 048
  5. LANSOX [Concomitant]
     Indication: DRUG USE FOR UNKNOWN INDICATION
     Dosage: UNIT DOSE: 15 MG
     Route: 048
  6. HUMALOG [Concomitant]
     Indication: DRUG USE FOR UNKNOWN INDICATION
     Route: 065
  7. LORTAAN [Concomitant]
     Indication: DRUG USE FOR UNKNOWN INDICATION
     Dosage: UNIT DOSE: 50 MG
     Route: 048

REACTIONS (2)
  - MACROGLOSSIA [None]
  - MUSCULOSKELETAL DISCOMFORT [None]
